FAERS Safety Report 18274138 (Version 2)
Quarter: 2020Q3

REPORT INFORMATION
  Report Type: Spontaneous
  Country: FR (occurrence: FR)
  Receive Date: 20200916
  Receipt Date: 20200929
  Transmission Date: 20201103
  Serious: Yes (Hospitalization)
  Sender: FDA-Public Use
  Company Number: FR-AMERICAN REGENT INC-2020001859

PATIENT
  Age: 17 Year
  Sex: Male
  Weight: 51 kg

DRUGS (4)
  1. FERINJECT [Suspect]
     Active Substance: FERRIC CARBOXYMALTOSE
     Indication: IRON DEFICIENCY ANAEMIA
     Dosage: 1 GM (1 GM,1 IN 1 TOTAL)
     Route: 042
     Dates: start: 20200803, end: 20200803
  2. ADALIMUMAB [Concomitant]
     Active Substance: ADALIMUMAB
     Dosage: 80 MILLIGRAM (160 MG, 1 IN 1 CYCLICAL)
     Route: 058
     Dates: start: 20200804
  3. DOLIPRANE [Concomitant]
     Active Substance: ACETAMINOPHEN
     Indication: PAIN
     Dosage: UNK, IF NECESSARY
     Route: 048
  4. ADALIMUMAB [Concomitant]
     Active Substance: ADALIMUMAB
     Indication: CROHN^S DISEASE
     Dosage: 1 X 160 MG (160 MG, 1 IN 1 CYCLICAL)
     Route: 058
     Dates: start: 20200722

REACTIONS (1)
  - Infusion related hypersensitivity reaction [Recovered/Resolved]

NARRATIVE: CASE EVENT DATE: 20200803
